FAERS Safety Report 9445309 (Version 1)
Quarter: 2013Q3

REPORT INFORMATION
  Report Type: Spontaneous
  Country: CA (occurrence: CA)
  Receive Date: 20130807
  Receipt Date: 20130807
  Transmission Date: 20140515
  Serious: Yes (Hospitalization)
  Sender: FDA-Public Use
  Company Number: CA-BAXTER-2013BAX030187

PATIENT
  Sex: Female

DRUGS (3)
  1. PHYSIONEAL 40 GLUCOSE 2.27% SOLUTION FOR PERITONEAL DIALYSIS [Suspect]
     Indication: PERITONEAL DIALYSIS
     Route: 033
     Dates: end: 20130411
  2. PHYSIONEAL 40 GLUCOSE 3.86% SOLUTION FOR PERITONEAL DIALYSIS [Suspect]
     Indication: PERITONEAL DIALYSIS
     Route: 033
     Dates: end: 20130411
  3. EXTRANEAL [Suspect]
     Indication: PERITONEAL DIALYSIS
     Route: 034
     Dates: end: 20130411

REACTIONS (4)
  - Spinal fracture [Recovering/Resolving]
  - Fall [Recovering/Resolving]
  - Peritoneal dialysis complication [Unknown]
  - Pain [Unknown]
